FAERS Safety Report 12624811 (Version 10)
Quarter: 2017Q4

REPORT INFORMATION
  Report Type: Spontaneous
  Country: US (occurrence: US)
  Receive Date: 20160805
  Receipt Date: 20171003
  Transmission Date: 20180320
  Serious: Yes (Life-Threatening, Congenital Anomaly, Other)
  Sender: FDA-Public Use
  Company Number: PHHY2015US130177

PATIENT
  Sex: Male

DRUGS (2)
  1. ONDANSETRON [Suspect]
     Active Substance: ONDANSETRON
     Indication: FOETAL EXPOSURE DURING PREGNANCY
     Dosage: MOTHER^S DOSE: 8 MG, PER DAY (QD)
     Route: 064
  2. ONDANSETRON HYDROCHLORIDE. [Suspect]
     Active Substance: ONDANSETRON HYDROCHLORIDE
     Indication: FOETAL EXPOSURE DURING PREGNANCY
     Route: 064

REACTIONS (50)
  - Diarrhoea neonatal [Unknown]
  - Pulmonary oedema neonatal [Recovered/Resolved]
  - Neonatal respiratory failure [Recovered/Resolved]
  - Rectal haemorrhage [Recovered/Resolved]
  - Transient tachypnoea of the newborn [Unknown]
  - Fever neonatal [Unknown]
  - Neonatal hypoxia [Recovered/Resolved]
  - Foetal exposure during pregnancy [Unknown]
  - Congenital anomaly [Unknown]
  - Cyanosis neonatal [Unknown]
  - Haematochezia [Recovered/Resolved]
  - Pleural effusion [Recovered/Resolved]
  - Impaired gastric emptying [Unknown]
  - Supraventricular tachycardia [Recovered/Resolved]
  - Lung hyperinflation [Unknown]
  - Hypotonia [Unknown]
  - Intestinal malrotation [Unknown]
  - Ventricular septal defect [Recovered/Resolved]
  - Univentricular heart [Recovered/Resolved]
  - Enterocolitis [Recovered/Resolved]
  - Arrhythmia [Unknown]
  - Cough [Unknown]
  - Cardiac murmur [Unknown]
  - Dermatitis diaper [Unknown]
  - Stridor [Unknown]
  - Congenital hand malformation [Unknown]
  - Heart disease congenital [Unknown]
  - Anomalous pulmonary venous connection [Recovered/Resolved]
  - Hypoglycaemia neonatal [Unknown]
  - Lower respiratory tract infection viral [Unknown]
  - Poor weight gain neonatal [Unknown]
  - Atrioventricular septal defect [Recovered/Resolved]
  - Right aortic arch [Unknown]
  - Atrial septal defect [Unknown]
  - Respiratory syncytial virus bronchiolitis [Recovered/Resolved]
  - Cardiac failure congestive [Unknown]
  - Pulmonary valve stenosis congenital [Recovered/Resolved]
  - Neonatal respiratory distress syndrome [Recovered/Resolved]
  - Chylothorax [Unknown]
  - Gross motor delay [Unknown]
  - Peripheral swelling [Unknown]
  - Upper respiratory tract infection [Unknown]
  - Dyspnoea [Unknown]
  - Double outlet right ventricle [Unknown]
  - Heterotaxia [Recovered/Resolved]
  - Aortic valve incompetence [Unknown]
  - Atelectasis neonatal [Unknown]
  - Laryngeal stenosis [Unknown]
  - Dysphagia [Unknown]
  - Gastrooesophageal reflux disease [Unknown]
